FAERS Safety Report 7372765-0 (Version None)
Quarter: 2011Q1

REPORT INFORMATION
  Report Type: 
  Country: None (occurrence: None)
  Receive Date: 20110324
  Receipt Date: 20110310
  Transmission Date: 20110831
  Serious: Yes (Other)
  Sender: FDA-Public Use
  Company Number: CA-VALEANT-2011VX000768

PATIENT
  Age: 37 Year
  Sex: Female

DRUGS (1)
  1. LIBRAX [Suspect]
     Route: 065
     Dates: start: 20110101

REACTIONS (1)
  - ANAEMIA [None]
